FAERS Safety Report 8474322-1 (Version None)
Quarter: 2012Q2

REPORT INFORMATION
  Report Type: 
  Country: None (occurrence: None)
  Receive Date: 20120621
  Receipt Date: 20120606
  Transmission Date: 20120825
  Serious: Yes (Other)
  Sender: FDA-Public Use
  Company Number: 2012P1038978

PATIENT
  Age: 53 Year
  Sex: Female

DRUGS (12)
  1. CLONIDINE [Concomitant]
  2. FENTANYL-100 [Suspect]
     Indication: PAIN
     Dosage: 1 PATCH;  2 PATCHES
  3. FENTANYL-100 [Suspect]
     Indication: NEURALGIA
     Dosage: 1 PATCH;  2 PATCHES
  4. PREMARIN [Concomitant]
  5. DIOVAN [Concomitant]
  6. JANTOVEN [Concomitant]
  7. AMLODIPINE [Concomitant]
  8. FENTANYL-75 [Suspect]
     Indication: PAIN
     Dosage: 1 PATCH;
  9. FENTANYL-75 [Suspect]
     Indication: NEURALGIA
     Dosage: 1 PATCH;
  10. CYMBALTA [Concomitant]
  11. FENTANYL [Suspect]
     Indication: NEURALGIA
  12. FENTANYL [Suspect]
     Indication: PAIN

REACTIONS (12)
  - BLOOD PRESSURE INCREASED [None]
  - NIGHT SWEATS [None]
  - PAIN IN EXTREMITY [None]
  - PRURITUS [None]
  - FEELING ABNORMAL [None]
  - HYPERSENSITIVITY [None]
  - DRUG EFFECT DECREASED [None]
  - RENAL ATROPHY [None]
  - THROMBOSIS [None]
  - APPLICATION SITE ERYTHEMA [None]
  - PRODUCT ADHESION ISSUE [None]
  - CONDITION AGGRAVATED [None]
